FAERS Safety Report 7316336-0 (Version None)
Quarter: 2011Q1

REPORT INFORMATION
  Report Type: 
  Country: None (occurrence: None)
  Receive Date: 20110225
  Receipt Date: 20110211
  Transmission Date: 20110831
  Serious: Yes (Other)
  Sender: FDA-Public Use
  Company Number: US-CELGENEUS-163-21880-10032787

PATIENT
  Sex: Male
  Weight: 76.2 kg

DRUGS (24)
  1. REVLIMID [Suspect]
     Indication: MULTIPLE MYELOMA
     Route: 048
     Dates: start: 20091101
  2. NITROGLYCERIN [Concomitant]
     Route: 065
  3. OXYCODONE [Concomitant]
     Route: 065
  4. PENICILLIN [Concomitant]
     Route: 065
  5. AGGRENOX [Concomitant]
     Route: 065
  6. ATENOLOL [Concomitant]
     Route: 065
  7. MEGACE [Concomitant]
     Route: 065
  8. RANEXA [Concomitant]
     Route: 065
  9. COUMADIN [Concomitant]
     Route: 065
  10. DECADRON [Concomitant]
     Route: 065
  11. ISOSORBIDE DINITRATE [Concomitant]
     Route: 065
  12. LIPITOR [Concomitant]
     Route: 065
  13. NOVOLIN 70/30 [Concomitant]
     Route: 065
  14. ASA [Concomitant]
     Route: 065
  15. METFORMIN HCL [Concomitant]
     Route: 065
  16. XANAX [Concomitant]
     Route: 065
  17. REVLIMID [Suspect]
     Route: 048
     Dates: start: 20100211
  18. COZAAR [Concomitant]
     Route: 065
  19. NEXIUM [Concomitant]
     Route: 065
  20. PROVENTIL [Concomitant]
     Route: 065
  21. PROZAC [Concomitant]
     Route: 065
  22. NIASPAN [Concomitant]
     Route: 065
  23. NORVASC [Concomitant]
     Route: 065
  24. NASONEX [Concomitant]
     Route: 065

REACTIONS (10)
  - NAUSEA [None]
  - BACK PAIN [None]
  - HAEMORRHAGE [None]
  - GAIT DISTURBANCE [None]
  - CHEST PAIN [None]
  - TREMOR [None]
  - INFLUENZA LIKE ILLNESS [None]
  - THROMBOSIS [None]
  - HYPOAESTHESIA [None]
  - OEDEMA PERIPHERAL [None]
